FAERS Safety Report 14147643 (Version 1)
Quarter: 2017Q4

REPORT INFORMATION
  Report Type: Spontaneous
  Country: US (occurrence: US)
  Receive Date: 20171031
  Receipt Date: 20171031
  Transmission Date: 20180321
  Serious: No
  Sender: FDA-Public Use
  Company Number: US-ROMARKLABS-2017-US-000015

PATIENT
  Age: 49 Year
  Sex: Male

DRUGS (2)
  1. PROTONIX [Concomitant]
     Active Substance: PANTOPRAZOLE SODIUM
     Indication: PRODUCT USED FOR UNKNOWN INDICATION
     Dosage: AS NEEDED INTERMITTENTLY
  2. ALINIA [Suspect]
     Active Substance: NITAZOXANIDE
     Indication: IRRITABLE BOWEL SYNDROME
     Dosage: 2 TABLETS DAILY
     Route: 048
     Dates: start: 20170127

REACTIONS (3)
  - Abdominal pain upper [Recovered/Resolved]
  - Drug ineffective for unapproved indication [Unknown]
  - Chromaturia [Unknown]

NARRATIVE: CASE EVENT DATE: 201701
